FAERS Safety Report 25518349 (Version 2)
Quarter: 2025Q3

REPORT INFORMATION
  Report Type: Spontaneous
  Country: EU (occurrence: EU)
  Receive Date: 20250704
  Receipt Date: 20250809
  Transmission Date: 20251021
  Serious: Yes (Death, Life-Threatening, Hospitalization)
  Sender: ALEXION PHARMACEUTICALS
  Company Number: EU-AstraZeneca-CH-00902593A

PATIENT
  Age: 62 Year
  Sex: Male
  Weight: 90 kg

DRUGS (1)
  1. DAPAGLIFLOZIN [Suspect]
     Active Substance: DAPAGLIFLOZIN
     Indication: Type 2 diabetes mellitus
     Dates: start: 202401, end: 20250516

REACTIONS (4)
  - Urinary tract infection [Fatal]
  - Necrotising fasciitis [Fatal]
  - Scrotal abscess [Fatal]
  - Sepsis [Fatal]

NARRATIVE: CASE EVENT DATE: 20250501
